FAERS Safety Report 23700083 (Version 1)
Quarter: 2024Q2

REPORT INFORMATION
  Report Type: Spontaneous
  Country: US (occurrence: US)
  Receive Date: 20240403
  Receipt Date: 20240403
  Transmission Date: 20240716
  Serious: Yes (Other)
  Sender: FDA-Public Use
  Company Number: US-MIMS-CORIMC-4921

PATIENT
  Age: 6 Year
  Sex: Male

DRUGS (2)
  1. AZSTARYS [Suspect]
     Active Substance: DEXMETHYLPHENIDATE HYDROCHLORIDE\SERDEXMETHYLPHENIDATE CHLORIDE
     Indication: Attention deficit hyperactivity disorder
     Dosage: 52.3 MG/10.4 MG, QD
     Route: 048
     Dates: start: 202311, end: 202402
  2. AZSTARYS [Suspect]
     Active Substance: DEXMETHYLPHENIDATE HYDROCHLORIDE\SERDEXMETHYLPHENIDATE CHLORIDE
     Dosage: 52.3 MG/10.4 MG, QD
     Route: 048
     Dates: start: 202402, end: 2024

REACTIONS (4)
  - Surgery [Unknown]
  - Chorea [Unknown]
  - Hallucination [Unknown]
  - Product quality issue [Unknown]

NARRATIVE: CASE EVENT DATE: 20240201
